FAERS Safety Report 7433221-4 (Version None)
Quarter: 2011Q2

REPORT INFORMATION
  Report Type: 
  Country: None (occurrence: None)
  Receive Date: 20110422
  Receipt Date: 20110411
  Transmission Date: 20111010
  Serious: Yes (Other)
  Sender: FDA-Public Use
  Company Number: PHHY2011DE30909

PATIENT
  Sex: Female

DRUGS (1)
  1. DIOVAN [Suspect]
     Route: 048
     Dates: start: 20100101

REACTIONS (2)
  - BREAST CANCER [None]
  - BREAST CALCIFICATIONS [None]
